FAERS Safety Report 5699296-8 (Version None)
Quarter: 2008Q2

REPORT INFORMATION
  Report Type: 
  Country: None (occurrence: None)
  Receive Date: 20080404
  Receipt Date: 20080331
  Transmission Date: 20081010
  Serious: Yes (Life-Threatening)
  Sender: FDA-Public Use
  Company Number: CLOF-1000128

PATIENT

DRUGS (1)
  1. CLOFARABINE (CLOFARABINE) SOLUTION FOR INFUSION [Suspect]
     Indication: ACUTE LEUKAEMIA
     Dosage: INTRAVENOUS
     Route: 042

REACTIONS (4)
  - DIALYSIS [None]
  - HEPATOTOXICITY [None]
  - NEPHROPATHY TOXIC [None]
  - TRANSAMINASES INCREASED [None]
